FAERS Safety Report 8574607-4 (Version None)
Quarter: 2012Q3

REPORT INFORMATION
  Report Type: 
  Country: None (occurrence: None)
  Receive Date: 20120807
  Receipt Date: 20120726
  Transmission Date: 20120928
  Serious: Yes (Hospitalization)
  Sender: FDA-Public Use
  Company Number: US-009507513-1207USA011511

PATIENT

DRUGS (2)
  1. REBETOL [Suspect]
     Route: 048
  2. VICTRELIS [Suspect]
     Dosage: 800 MG, TID
     Route: 048

REACTIONS (6)
  - PALPITATIONS [None]
  - FATIGUE [None]
  - DYSPNOEA [None]
  - ANAEMIA [None]
  - PARAESTHESIA [None]
  - DECREASED APPETITE [None]
